FAERS Safety Report 7800197-7 (Version None)
Quarter: 2011Q4

REPORT INFORMATION
  Report Type: 
  Country: None (occurrence: None)
  Receive Date: 20111006
  Receipt Date: 20110929
  Transmission Date: 20120403
  Serious: Yes (Death, Other)
  Sender: FDA-Public Use
  Company Number: JP-BAYER-2011-011600

PATIENT
  Sex: Female
  Weight: 36 kg

DRUGS (15)
  1. FRESMIN S TAKEDA [Concomitant]
     Dosage: 2 MG, UNK
     Route: 042
     Dates: start: 20090911, end: 20100326
  2. LOXOPROFEN [Concomitant]
     Dosage: DAILY DOSE 180 MG
     Route: 048
     Dates: start: 20090825
  3. CEFMETAZON [Concomitant]
     Dosage: 2 G, UNK
     Route: 042
     Dates: start: 20091022, end: 20091028
  4. WARFARIN SODIUM [Concomitant]
     Dosage: UNK
     Route: 048
     Dates: start: 20090825
  5. FERROUS CITRATE [Concomitant]
     Dosage: DAILY DOSE 100 MG
     Route: 048
     Dates: start: 20090825, end: 20090915
  6. SORAFENIB [Suspect]
     Indication: RENAL CELL CARCINOMA
     Dosage: DAILY DOSE 400 MG
     Route: 048
     Dates: start: 20090826
  7. MAGMITT [Concomitant]
     Dosage: DAILY DOSE 990 MG
     Route: 048
     Dates: start: 20090825, end: 20100420
  8. POTASSIUM CHLORIDE [Concomitant]
     Dosage: DAILY DOSE 500 ML
     Route: 042
     Dates: start: 20090825, end: 20090825
  9. NOVO HEPARIN AVENTIS [Concomitant]
     Dosage: DAILY DOSE 5 ML
     Route: 042
     Dates: start: 20090825, end: 20090825
  10. SORAFENIB [Suspect]
     Dosage: 400 MG, UNK
     Route: 048
     Dates: start: 20090915, end: 20100808
  11. CEFOPERAZONE SODIUM [Concomitant]
     Dosage: 2 G, UNK
     Route: 042
     Dates: start: 20090917, end: 20090918
  12. SEROQUEL [Concomitant]
     Dosage: DAILY DOSE 25 MG
     Route: 048
     Dates: start: 20100101
  13. LAXOBERON [Concomitant]
     Dosage: DAILY DOSE 15 GTT
     Route: 048
     Dates: start: 20090825
  14. TETRAMIDE [Concomitant]
     Dosage: DAILY DOSE 30 MG
     Route: 048
     Dates: start: 20090825, end: 20091013
  15. SEFMAZON [Concomitant]
     Dosage: DAILY DOSE 2 G
     Route: 042
     Dates: start: 20090825, end: 20090825

REACTIONS (17)
  - RASH [None]
  - WHITE BLOOD CELL COUNT DECREASED [None]
  - LYMPHOCYTE COUNT INCREASED [None]
  - ANAEMIA [None]
  - ALOPECIA [None]
  - HYPOCALCAEMIA [None]
  - BLOOD THYROID STIMULATING HORMONE INCREASED [None]
  - WHITE BLOOD CELL COUNT INCREASED [None]
  - HOT FLUSH [None]
  - EOSINOPHIL COUNT INCREASED [None]
  - DELIRIUM [None]
  - HYPERTENSION [None]
  - BLOOD AMYLASE INCREASED [None]
  - HYPOTHYROIDISM [None]
  - HYPOPHOSPHATAEMIA [None]
  - DEATH [None]
  - HEPATIC FUNCTION ABNORMAL [None]
